FAERS Safety Report 7677929-4 (Version None)
Quarter: 2011Q3

REPORT INFORMATION
  Report Type: 
  Country: None (occurrence: None)
  Receive Date: 20110811
  Receipt Date: 20110729
  Transmission Date: 20111222
  Serious: Yes (Hospitalization)
  Sender: FDA-Public Use
  Company Number: US-ACTELION-A-NJ2011-47455

PATIENT

DRUGS (7)
  1. TRACLEER [Suspect]
     Dosage: UNK
     Route: 048
     Dates: start: 20100709, end: 20110401
  2. THYROID TAB [Concomitant]
  3. LEVAQUIN [Concomitant]
  4. CALCIUM CHANNEL BLOCKERS [Concomitant]
  5. TRACLEER [Suspect]
     Indication: PULMONARY ARTERIAL HYPERTENSION
     Dosage: UNK
     Route: 048
     Dates: start: 20110101, end: 20110101
  6. IMDUR [Concomitant]
  7. COUMADIN [Concomitant]

REACTIONS (5)
  - CELLULITIS [None]
  - TRANSFUSION [None]
  - ANAEMIA [None]
  - HYPOTENSION [None]
  - LOCALISED INFECTION [None]
